FAERS Safety Report 9340868 (Version 2)
Quarter: 2015Q1

REPORT INFORMATION
  Report Type: Spontaneous
  Country: US (occurrence: DE)
  Receive Date: 20130610
  Receipt Date: 20150302
  Transmission Date: 20150721
  Serious: Yes (Other)
  Sender: FDA-Public Use
  Company Number: DE-FRI-1000045813

PATIENT
  Sex: Female
  Weight: 78 kg

DRUGS (2)
  1. LINACLOTIDE [Suspect]
     Active Substance: LINACLOTIDE
     Indication: IRRITABLE BOWEL SYNDROME
     Dosage: ONCE DAILY (1 DOSAGE FORMS, 1 IN 1 D)
     Route: 048
     Dates: start: 20130514, end: 20130514
  2. LINACLOTIDE [Suspect]
     Active Substance: LINACLOTIDE
     Dosage: EVERY 2 DAYS (1 DOSAGE FORM, 3RD TIME)
     Route: 048

REACTIONS (9)
  - Diarrhoea [Recovered/Resolved]
  - Hypotension [Recovered/Resolved]
  - Syncope [Recovered/Resolved]
  - Gastrointestinal pain [Recovered/Resolved]
  - Intentional product misuse [Recovered/Resolved]
  - Cardiovascular disorder [Recovered/Resolved]
  - Abdominal pain lower [Recovered/Resolved]
  - Nausea [Recovered/Resolved]
  - Abdominal distension [Recovered/Resolved]

NARRATIVE: CASE EVENT DATE: 20130514
